FAERS Safety Report 4347812-0 (Version None)
Quarter: 2004Q2

REPORT INFORMATION
  Report Type: 
  Country: None (occurrence: None)
  Receive Date: 20040422
  Receipt Date: 20040407
  Transmission Date: 20050107
  Serious: Yes (Other)
  Sender: FDA-Public Use
  Company Number: US_0404102191

PATIENT
  Age: 80 Year
  Sex: Male
  Weight: 77 kg

DRUGS (4)
  1. HUMULIN-HUMAN INSULIN(RDNA) UNKNOWN FORMULATION(HU [Suspect]
  2. HUMULIN R [Suspect]
     Dates: start: 20031001
  3. INSULIN GLARGINE [Concomitant]
  4. GLUCERNA [Concomitant]

REACTIONS (4)
  - BLOOD GLUCOSE INCREASED [None]
  - CEREBROVASCULAR ACCIDENT [None]
  - DYSPHASIA [None]
  - OESOPHAGEAL STENOSIS [None]
